FAERS Safety Report 9343707 (Version 6)
Quarter: 2013Q4

REPORT INFORMATION
  Report Type: Report from Study
  Country: AU (occurrence: AU)
  Receive Date: 20130612
  Receipt Date: 20131113
  Transmission Date: 20140711
  Serious: Yes (Death, Hospitalization, Other)
  Sender: FDA-Public Use
  Company Number: PHHY2013AU058994

PATIENT
  Sex: Female

DRUGS (3)
  1. CLOZARIL [Suspect]
     Dosage: 225 MG,
     Dates: start: 20080317
  2. CLOZARIL [Suspect]
     Dosage: 225 MG,
     Dates: start: 20130317, end: 20130711
  3. CLOZARIL [Suspect]
     Dosage: 200 MG,

REACTIONS (6)
  - Breast cancer [Fatal]
  - Pericardial effusion [Unknown]
  - Cardiac tamponade [Unknown]
  - Malaise [Unknown]
  - Pleural effusion [Unknown]
  - Bronchopneumonia [Unknown]
